FAERS Safety Report 22743904 (Version 3)
Quarter: 2023Q4

REPORT INFORMATION
  Report Type: Report from Study
  Country: CA (occurrence: CA)
  Receive Date: 20230724
  Receipt Date: 20231201
  Transmission Date: 20240109
  Serious: Yes (Other)
  Sender: FDA-Public Use
  Company Number: CA-JNJFOC-20230547705

PATIENT
  Age: 9 Year
  Sex: Female
  Weight: 34 kg

DRUGS (3)
  1. REMICADE [Suspect]
     Active Substance: INFLIXIMAB
     Indication: Colitis ulcerative
     Dosage: WEEK 0, 2, 6?THERAPY START DATE: 24-MAY-2023?THERAPY START DATE: 25-MAY-2023
     Route: 042
     Dates: start: 20230518
  2. REMICADE [Suspect]
     Active Substance: INFLIXIMAB
     Route: 042
     Dates: start: 2023
  3. REMICADE [Suspect]
     Active Substance: INFLIXIMAB
     Dosage: DOSE ALSO REPORTED AS 10 MG/KG
     Route: 042
     Dates: start: 2023, end: 20231127

REACTIONS (5)
  - Colitis ulcerative [Unknown]
  - Inflammation [Unknown]
  - Drug level decreased [Unknown]
  - Drug ineffective [Unknown]
  - Off label use [Unknown]

NARRATIVE: CASE EVENT DATE: 20230101
